FAERS Safety Report 6793870-3 (Version None)
Quarter: 2010Q2

REPORT INFORMATION
  Report Type: 
  Country: None (occurrence: None)
  Receive Date: 20100624
  Receipt Date: 20090430
  Transmission Date: 20101027
  Serious: No
  Sender: FDA-Public Use
  Company Number: US-PFIZER INC-2008151951

PATIENT
  Sex: Male
  Weight: 122.46 kg

DRUGS (4)
  1. CADUET [Suspect]
     Indication: HYPERTENSION
     Dosage: [AMLODIPINE 10 MG]/[ATORVASTATIN 20 MG] DAILY
     Dates: start: 20060301
  2. CYMBALTA [Concomitant]
     Dosage: UNK
  3. PREVACID [Concomitant]
     Indication: GASTROOESOPHAGEAL REFLUX DISEASE
     Dosage: UNK
  4. REQUIP [Concomitant]
     Dosage: UNK

REACTIONS (3)
  - OEDEMA PERIPHERAL [None]
  - PRURITUS [None]
  - SKIN BURNING SENSATION [None]
